FAERS Safety Report 19725723 (Version 2)
Quarter: 2021Q3

REPORT INFORMATION
  Report Type: Spontaneous
  Country: DE (occurrence: DE)
  Receive Date: 20210820
  Receipt Date: 20210831
  Transmission Date: 20211014
  Serious: Yes (Hospitalization, Other)
  Sender: FDA-Public Use
  Company Number: DE-SUN PHARMACEUTICAL INDUSTRIES LTD-2021RR-308635

PATIENT
  Age: 35 Year

DRUGS (7)
  1. FYREMADEL [Suspect]
     Active Substance: GANIRELIX ACETATE
     Indication: ASSISTED REPRODUCTIVE TECHNOLOGY
     Dosage: 7.?10 ZT
     Route: 065
  2. CYCLOGEST [Suspect]
     Active Substance: PROGESTERONE
     Indication: ASSISTED REPRODUCTIVE TECHNOLOGY
     Dosage: AB 14. ZT
     Route: 065
  3. CYCLOGEST [Suspect]
     Active Substance: PROGESTERONE
     Dosage: AB 14. ZT
     Route: 065
  4. OVALEAP [Suspect]
     Active Substance: FOLLITROPIN ALFA
     Route: 065
  5. OVALEAP [Suspect]
     Active Substance: FOLLITROPIN ALFA
     Dosage: 3. + 4. ZT, UNK
     Route: 065
  6. OVALEAP [Suspect]
     Active Substance: FOLLITROPIN ALFA
     Indication: ASSISTED REPRODUCTIVE TECHNOLOGY
     Dosage: 5. ? 10. ZT, UNK
     Route: 065
  7. OVITRELLE 250 MICROG [Suspect]
     Active Substance: CHORIOGONADOTROPIN ALFA
     Indication: ASSISTED REPRODUCTIVE TECHNOLOGY
     Dosage: 11. ZT
     Route: 065

REACTIONS (3)
  - Ovarian hyperstimulation syndrome [Recovering/Resolving]
  - Pain [Unknown]
  - Abdominal discomfort [Unknown]

NARRATIVE: CASE EVENT DATE: 202107
